FAERS Safety Report 4674168-6 (Version None)
Quarter: 2005Q2

REPORT INFORMATION
  Report Type: 
  Country: None (occurrence: None)
  Receive Date: 20050524
  Receipt Date: 20050524
  Transmission Date: 20051028
  Serious: No
  Sender: FDA-Public Use
  Company Number: None

PATIENT
  Sex: Male
  Weight: 78.2 kg

DRUGS (2)
  1. CISPLATIN [Suspect]
     Indication: NEOPLASM MALIGNANT
     Dosage: 100 MG/M2 ON DAYS 1 AND 22
     Dates: start: 20050331, end: 20050520
  2. RADIATION [Suspect]
     Dosage: FOR 6 WEEKS

REACTIONS (4)
  - ANAEMIA [None]
  - FEBRILE NEUTROPENIA [None]
  - PAIN [None]
  - WHITE BLOOD CELL COUNT DECREASED [None]
